FAERS Safety Report 15307801 (Version 1)
Quarter: 2018Q3

REPORT INFORMATION
  Report Type: Report from Study
  Country: BD (occurrence: BD)
  Receive Date: 20180822
  Receipt Date: 20180822
  Transmission Date: 20181010
  Serious: Yes (Hospitalization, Other)
  Sender: FDA-Public Use
  Company Number: BD-SA-2018SA226674

PATIENT
  Age: 68 Year
  Sex: Male
  Weight: 65 kg

DRUGS (1)
  1. INSULIN GLARGINE [Suspect]
     Active Substance: INSULIN GLARGINE
     Dosage: UNK, UNK
     Route: 065
     Dates: start: 20060904

REACTIONS (3)
  - Foot amputation [Unknown]
  - Diabetes mellitus inadequate control [Unknown]
  - Foot operation [Unknown]

NARRATIVE: CASE EVENT DATE: 20170412
